FAERS Safety Report 18921748 (Version 3)
Quarter: 2021Q2

REPORT INFORMATION
  Report Type: Report from Study
  Country: JP (occurrence: JP)
  Receive Date: 20210222
  Receipt Date: 20210406
  Transmission Date: 20210717
  Serious: Yes (Hospitalization, Other)
  Sender: FDA-Public Use
  Company Number: JP-GLAXOSMITHKLINE-JP2021JPN046253

PATIENT
  Age: 59 Year
  Sex: Female
  Weight: 29 kg

DRUGS (7)
  1. ALFACALCIDOL TABLET [Concomitant]
     Indication: OSTEOPOROSIS
     Dosage: 1 DF, 1D
     Route: 048
  2. PREDNISOLONE TABLETS [Concomitant]
     Active Substance: PREDNISOLONE
     Indication: EOSINOPHILIC GRANULOMATOSIS WITH POLYANGIITIS
     Dosage: 40 MG
     Dates: start: 2020
  3. MEPOLIZUMAB [Suspect]
     Active Substance: MEPOLIZUMAB
     Indication: EOSINOPHILIC GRANULOMATOSIS WITH POLYANGIITIS
     Dosage: 300 MG
     Route: 058
     Dates: start: 20210112
  4. PREDNISOLONE TABLETS [Concomitant]
     Active Substance: PREDNISOLONE
     Dosage: 12.5 MG
     Route: 048
  5. ALENDRONATE SODIUM TABLET [Concomitant]
     Active Substance: ALENDRONATE SODIUM
     Indication: OSTEOPOROSIS
     Dosage: UNK, WE
     Route: 048
  6. BAKTAR TABLET [Concomitant]
     Indication: INFECTION PROPHYLAXIS
     Dosage: 0.5 DF, QOD
  7. BAKTAR TABLET [Concomitant]
     Indication: PNEUMONIA ASPIRATION

REACTIONS (4)
  - Lung infiltration [Unknown]
  - Neuropathy peripheral [Not Recovered/Not Resolved]
  - Neuropathy peripheral [Unknown]
  - Pneumonia aspiration [Recovered/Resolved]

NARRATIVE: CASE EVENT DATE: 2021
